FAERS Safety Report 20875326 (Version 1)
Quarter: 2022Q2

REPORT INFORMATION
  Report Type: Report from Study
  Country: US (occurrence: US)
  Receive Date: 20220526
  Receipt Date: 20220526
  Transmission Date: 20220720
  Serious: No
  Sender: FDA-Public Use
  Company Number: US-Ipsen Biopharmaceuticals, Inc.-2022-14232

PATIENT
  Age: 58 Year
  Sex: Female

DRUGS (1)
  1. LANREOTIDE ACETATE [Suspect]
     Active Substance: LANREOTIDE ACETATE
     Indication: Acromegaly
     Dosage: STRENGTH-120MG/0.5ML, DEEP SUBCUTANEOUSLY, EVERY ONE MONTH
     Route: 058
     Dates: start: 2015

REACTIONS (3)
  - Gait disturbance [Recovering/Resolving]
  - Product administered by wrong person [Unknown]
  - Product administered at inappropriate site [Unknown]

NARRATIVE: CASE EVENT DATE: 20150101
